FAERS Safety Report 9301620 (Version 1)
Quarter: 2013Q2

REPORT INFORMATION
  Report Type: Spontaneous
  Country: GB (occurrence: GB)
  Receive Date: 20130521
  Receipt Date: 20130521
  Transmission Date: 20140414
  Serious: Yes (Disabling, Congenital Anomaly)
  Sender: FDA-Public Use
  Company Number: GB-MYLANLABS-2013S1010143

PATIENT
  Sex: Male
  Weight: 6 kg

DRUGS (2)
  1. GABAPENTIN [Suspect]
     Route: 064
     Dates: start: 20120120, end: 201203
  2. FERROUS FUMARATE [Concomitant]
     Route: 064

REACTIONS (3)
  - Talipes [Not Recovered/Not Resolved]
  - Nail disorder [Not Recovered/Not Resolved]
  - Exposure during pregnancy [Unknown]
